FAERS Safety Report 5005081-2 (Version None)
Quarter: 2006Q2

REPORT INFORMATION
  Report Type: 
  Country: None (occurrence: None)
  Receive Date: 20060518
  Receipt Date: 20060509
  Transmission Date: 20061013
  Serious: Yes (Other)
  Sender: FDA-Public Use
  Company Number: US-JNJFOC-20060307430

PATIENT
  Sex: Female
  Weight: 52.16 kg

DRUGS (16)
  1. REMICADE [Suspect]
     Route: 042
  2. REMICADE [Suspect]
     Route: 042
  3. REMICADE [Suspect]
     Route: 042
  4. REMICADE [Suspect]
     Indication: RHEUMATOID ARTHRITIS
     Route: 042
  5. PLAQUENIL [Concomitant]
     Indication: RHEUMATOID ARTHRITIS
     Dosage: 300 DAILY
  6. FOLATE [Concomitant]
     Indication: RHEUMATOID ARTHRITIS
  7. SULFASALAZINE [Concomitant]
     Indication: RHEUMATOID ARTHRITIS
  8. NORVASC [Concomitant]
  9. STRONTIUM [Concomitant]
  10. VITAMIN D [Concomitant]
  11. GLUCOSAMINE [Concomitant]
  12. ASPIRIN [Concomitant]
  13. VITAMIN B6 [Concomitant]
  14. VITAMIN B-12 [Concomitant]
  15. MSM [Concomitant]
  16. CALCIUM GLUCONATE [Concomitant]

REACTIONS (1)
  - OPTIC ISCHAEMIC NEUROPATHY [None]
